FAERS Safety Report 17979031 (Version 6)
Quarter: 2022Q2

REPORT INFORMATION
  Report Type: Report from Study
  Country: CA (occurrence: CA)
  Receive Date: 20200703
  Receipt Date: 20220607
  Transmission Date: 20220721
  Serious: Yes (Other)
  Sender: FDA-Public Use
  Company Number: PHHY2018CA114335

PATIENT
  Age: 72 Year
  Sex: Female

DRUGS (3)
  1. SANDOSTATIN LAR DEPOT [Suspect]
     Active Substance: OCTREOTIDE ACETATE
     Indication: Dumping syndrome
     Dosage: 30 MG, Q3W
     Route: 030
     Dates: start: 20000910
  2. SANDOSTATIN LAR DEPOT [Suspect]
     Active Substance: OCTREOTIDE ACETATE
     Dosage: 30 MG, Q3W
     Route: 030
  3. SANDOSTATIN LAR DEPOT [Suspect]
     Active Substance: OCTREOTIDE ACETATE
     Dosage: 20 MG, QMO
     Route: 030

REACTIONS (18)
  - Cellulitis [Unknown]
  - Renal failure [Unknown]
  - Atrial fibrillation [Unknown]
  - Fall [Unknown]
  - Swelling [Unknown]
  - Somnambulism [Unknown]
  - Limb discomfort [Unknown]
  - Fatigue [Unknown]
  - Blood pressure systolic increased [Unknown]
  - Renal disorder [Unknown]
  - Diarrhoea [Unknown]
  - Clostridium test positive [Unknown]
  - Blood pressure decreased [Unknown]
  - Dialysis hypotension [Unknown]
  - Needle issue [Unknown]
  - Product use in unapproved indication [Unknown]
  - Inappropriate schedule of product administration [Unknown]
  - Injection site mass [Unknown]

NARRATIVE: CASE EVENT DATE: 20190901
